FAERS Safety Report 12973605 (Version 1)
Quarter: 2016Q4

REPORT INFORMATION
  Report Type: Spontaneous
  Country: CH (occurrence: CH)
  Receive Date: 20161124
  Receipt Date: 20161124
  Transmission Date: 20170207
  Serious: Yes (Other)
  Sender: FDA-Public Use
  Company Number: CH-ASTRAZENECA-2016SF23793

PATIENT
  Sex: Male

DRUGS (6)
  1. ASPIRIN. [Concomitant]
     Active Substance: ASPIRIN
     Dosage: 100 MG
  2. TORASEMIDE [Concomitant]
     Active Substance: TORSEMIDE
     Dosage: 10
  3. CRESTOR [Suspect]
     Active Substance: ROSUVASTATIN CALCIUM
     Dosage: 20.0MG UNKNOWN
     Route: 048
  4. GALVUMET [Concomitant]
     Active Substance: METFORMIN HYDROCHLORIDE\VILDAGLIPTIN
     Dosage: 850 / 50
  5. LISINOPRIL. [Concomitant]
     Active Substance: LISINOPRIL
  6. MEMANTIN [Concomitant]
     Active Substance: MEMANTINE
     Dosage: 10 MG

REACTIONS (1)
  - Anaemia [Unknown]
